FAERS Safety Report 9798188 (Version 1)
Quarter: 2014Q1

REPORT INFORMATION
  Report Type: Spontaneous
  Country: PH (occurrence: PH)
  Receive Date: 20140106
  Receipt Date: 20140106
  Transmission Date: 20141002
  Serious: Yes (Death)
  Sender: FDA-Public Use
  Company Number: PH-SA-2013SA136412

PATIENT
  Age: 16 Year
  Sex: Female

DRUGS (4)
  1. RIFAMPICIN [Suspect]
     Indication: LYMPH NODE TUBERCULOSIS
     Route: 065
  2. ISONIAZID [Suspect]
     Indication: LYMPH NODE TUBERCULOSIS
     Route: 065
  3. PYRAZINAMIDE [Suspect]
     Indication: LYMPH NODE TUBERCULOSIS
     Route: 065
  4. ETHAMBUTOL [Suspect]
     Indication: LYMPH NODE TUBERCULOSIS
     Route: 065

REACTIONS (22)
  - Drug reaction with eosinophilia and systemic symptoms [Fatal]
  - Influenza like illness [Fatal]
  - Rash [Fatal]
  - Leukocytosis [Fatal]
  - Eosinophilia [Fatal]
  - Hepatocellular injury [Fatal]
  - Pruritus [Fatal]
  - Rash maculo-papular [Fatal]
  - Macule [Fatal]
  - Lip dry [Fatal]
  - Ocular icterus [Fatal]
  - Lymphadenopathy [Fatal]
  - Transaminases increased [Fatal]
  - Hypotension [Fatal]
  - Erythema [Fatal]
  - Pyrexia [Fatal]
  - Acute respiratory distress syndrome [Fatal]
  - Hypoxia [Fatal]
  - Dyspnoea [Fatal]
  - Crepitations [Fatal]
  - Respiratory alkalosis [Fatal]
  - Lung infiltration [Fatal]
